FAERS Safety Report 6233333-7 (Version None)
Quarter: 2009Q2

REPORT INFORMATION
  Report Type: 
  Country: None (occurrence: None)
  Receive Date: 20090616
  Receipt Date: 20090616
  Transmission Date: 20091009
  Serious: Yes (Other)
  Sender: FDA-Public Use
  Company Number: None

PATIENT
  Sex: Female
  Weight: 99.7913 kg

DRUGS (1)
  1. LAMICTAL [Suspect]
     Indication: EPILEPSY
     Dosage: 100 MG BID PO
     Route: 048

REACTIONS (7)
  - COLD SWEAT [None]
  - COMPLEX PARTIAL SEIZURES [None]
  - DISORIENTATION [None]
  - DISSOCIATION [None]
  - FEELING ABNORMAL [None]
  - MEMORY IMPAIRMENT [None]
  - PRODUCT SUBSTITUTION ISSUE [None]
